FAERS Safety Report 8576908-2 (Version None)
Quarter: 2012Q3

REPORT INFORMATION
  Report Type: 
  Country: None (occurrence: None)
  Receive Date: 20120725
  Receipt Date: 20120723
  Transmission Date: 20120928
  Serious: Yes (Other)
  Sender: FDA-Public Use
  Company Number: SPO5833

PATIENT
  Age: 53 Year
  Sex: Female

DRUGS (5)
  1. EMULGENT [Concomitant]
  2. PIVOXIL [Concomitant]
  3. LAMIVUDINE [Concomitant]
  4. ADEFOVIR [Concomitant]
  5. VISICOL [Suspect]
     Indication: ENDOSCOPY LARGE BOWEL
     Dosage: (50 GM),ORAL
     Route: 048
     Dates: start: 20120613, end: 20120613

REACTIONS (3)
  - TETANY [None]
  - HYPOAESTHESIA [None]
  - HYPOCALCAEMIA [None]
